FAERS Safety Report 5720850-9 (Version None)
Quarter: 2008Q2

REPORT INFORMATION
  Report Type: 
  Country: None (occurrence: None)
  Receive Date: 20080429
  Receipt Date: 20070321
  Transmission Date: 20081010
  Serious: No
  Sender: FDA-Public Use
  Company Number: A0644702A

PATIENT
  Sex: Female

DRUGS (2)
  1. SEREVENT [Suspect]
     Indication: DRUG USE FOR UNKNOWN INDICATION
     Route: 055
  2. ADVAIR HFA [Suspect]
     Indication: DRUG USE FOR UNKNOWN INDICATION
     Route: 055

REACTIONS (3)
  - BRONCHITIS [None]
  - INFLUENZA [None]
  - RESPIRATORY TRACT CONGESTION [None]
